FAERS Safety Report 24737478 (Version 2)
Quarter: 2024Q4

REPORT INFORMATION
  Report Type: Spontaneous
  Country: CN (occurrence: CN)
  Receive Date: 20241216
  Receipt Date: 20241218
  Transmission Date: 20250114
  Serious: Yes (Hospitalization)
  Sender: ACCORD
  Company Number: None

PATIENT
  Age: 64 Year
  Sex: Female
  Weight: 48 kg

DRUGS (6)
  1. TRASTUZUMAB [Suspect]
     Active Substance: TRASTUZUMAB
     Indication: HER2 positive breast cancer
     Dosage: STRENGTH: 150 MILLIGRAM, IV DRIP
     Dates: start: 20241018, end: 20241018
  2. PERTUZUMAB [Suspect]
     Active Substance: PERTUZUMAB
     Indication: Invasive breast carcinoma
     Dosage: REGIMEN 1: 420 MILLIGRAM, QD; IV DRIP
     Dates: start: 20241018, end: 20241018
  3. DOCETAXEL [Suspect]
     Active Substance: DOCETAXEL
     Indication: Invasive breast carcinoma
     Dosage: 140 MILLIGRAM, QD; IV DRIP
     Dates: start: 20241019, end: 20241019
  4. TRASTUZUMAB [Suspect]
     Active Substance: TRASTUZUMAB
     Indication: HER2 positive breast cancer
     Dosage: STRENGTH: 150 MILLIGRAM, IV DRIP,
     Dates: start: 20241111, end: 20241111
  5. PERTUZUMAB [Suspect]
     Active Substance: PERTUZUMAB
     Indication: HER2 positive breast cancer
     Dosage: REGIMEN 2: 420 MILLIGRAM, QD; IV DRIP
     Dates: start: 20241111, end: 20241111
  6. DOCETAXEL [Suspect]
     Active Substance: DOCETAXEL
     Indication: HER2 positive breast cancer
     Dosage: REGIMEN 2: 140 MILLIGRAM, QD; IV DRIP
     Dates: start: 20241112, end: 20241112

REACTIONS (1)
  - Myelosuppression [Recovering/Resolving]

NARRATIVE: CASE EVENT DATE: 20241026
